FAERS Safety Report 24362829 (Version 1)
Quarter: 2024Q3

REPORT INFORMATION
  Report Type: Spontaneous
  Country: CZ (occurrence: CZ)
  Receive Date: 20240925
  Receipt Date: 20240925
  Transmission Date: 20241016
  Serious: Yes (Life-Threatening, Hospitalization, Other)
  Sender: GLAXOSMITHKLINE
  Company Number: None

PATIENT

DRUGS (4)
  1. ZEJULA [Suspect]
     Active Substance: NIRAPARIB
     Indication: Ovarian cancer
     Dosage: 200 MG, QD (2-0-0, MAINTENANCE THERAPY)
     Route: 048
     Dates: start: 20240726, end: 20240823
  2. PACLITAXEL [Concomitant]
     Active Substance: PACLITAXEL
     Indication: Ovarian cancer
     Dosage: UNK (6 CYCLES OF ADJUVANT THERAPY PACLITAXEL/CARBOPLATIN, THE LAST CYCLE 10.06.2024)
     Route: 065
     Dates: end: 20240610
  3. TELMISARTAN [Concomitant]
     Active Substance: TELMISARTAN
     Indication: Product used for unknown indication
     Dosage: UNK UNK, QD (1-0-0)
     Route: 048
  4. CARBOPLATIN [Concomitant]
     Active Substance: CARBOPLATIN
     Indication: Ovarian cancer
     Dosage: UNK (6 CYCLES OF ADJUVANT THERAPY PACLITAXEL/CARBOPLATIN, THE LAST CYCLE 10.06.2024)
     Route: 065
     Dates: end: 20240610

REACTIONS (12)
  - Haematotoxicity [Recovering/Resolving]
  - Thrombocytopenia [Unknown]
  - Neutropenia [Unknown]
  - Asthenia [Recovering/Resolving]
  - Haematoma [Recovering/Resolving]
  - Dizziness [Recovering/Resolving]
  - Fatigue [Recovering/Resolving]
  - Feeling abnormal [Recovering/Resolving]
  - Dyspnoea [Recovering/Resolving]
  - Haemorrhagic diathesis [Unknown]
  - Erythropenia [Unknown]
  - Contusion [Unknown]

NARRATIVE: CASE EVENT DATE: 20240801
